FAERS Safety Report 4420990-0 (Version None)
Quarter: 2004Q3

REPORT INFORMATION
  Report Type: 
  Country: None (occurrence: None)
  Receive Date: 20040809
  Receipt Date: 20030917
  Transmission Date: 20050211
  Serious: Yes (Hospitalization)
  Sender: FDA-Public Use
  Company Number: JP-GLAXOSMITHKLINE-A0426987A

PATIENT
  Sex: Male

DRUGS (2)
  1. NAVELBINE [Suspect]
     Route: 042
     Dates: start: 20030601
  2. GEMZAR [Suspect]
     Route: 042
     Dates: start: 20030601

REACTIONS (6)
  - ANOREXIA [None]
  - APHASIA [None]
  - DISEASE PROGRESSION [None]
  - LEUKOENCEPHALOPATHY [None]
  - METASTASES TO CENTRAL NERVOUS SYSTEM [None]
  - RHINORRHOEA [None]
